FAERS Safety Report 10016266 (Version 2)
Quarter: 2014Q2

REPORT INFORMATION
  Report Type: Report from Study
  Country: CA (occurrence: CA)
  Receive Date: 20140317
  Receipt Date: 20140428
  Transmission Date: 20141212
  Serious: Yes (Hospitalization, Other)
  Sender: FDA-Public Use
  Company Number: CA-ABBVIE-14P-028-1210624-00

PATIENT
  Age: 56 Year
  Sex: Male
  Weight: 113.95 kg

DRUGS (4)
  1. HUMIRA [Suspect]
     Indication: PSORIASIS
     Route: 058
     Dates: start: 20130703, end: 201312
  2. HUMIRA [Suspect]
  3. METHOTREXATE [Concomitant]
     Indication: PSORIASIS
  4. UNKNOWN [Concomitant]
     Indication: DIABETES MELLITUS
     Route: 048

REACTIONS (5)
  - Gastric disorder [Unknown]
  - Intussusception [Recovered/Resolved]
  - Incision site infection [Unknown]
  - Malaise [Not Recovered/Not Resolved]
  - Gastric infection [Not Recovered/Not Resolved]
